FAERS Safety Report 6154929-7 (Version None)
Quarter: 2009Q2

REPORT INFORMATION
  Report Type: 
  Country: None (occurrence: None)
  Receive Date: 20090414
  Receipt Date: 20090408
  Transmission Date: 20091009
  Serious: Yes (Other)
  Sender: FDA-Public Use
  Company Number: US-PFIZER INC-2006055366

PATIENT
  Sex: Female

DRUGS (8)
  1. PROVERA [Suspect]
     Indication: HORMONE REPLACEMENT THERAPY
     Route: 048
     Dates: start: 19880101, end: 20000101
  2. PREMARIN [Suspect]
     Indication: HORMONE REPLACEMENT THERAPY
     Route: 065
     Dates: start: 19880101, end: 20000101
  3. PREMPRO [Suspect]
     Indication: HORMONE REPLACEMENT THERAPY
     Dosage: UNK
     Route: 065
     Dates: start: 19960101, end: 20000501
  4. ATENOLOL [Concomitant]
     Indication: HYPERTENSION
     Dosage: UNK
     Dates: start: 19980101
  5. AMBIEN [Concomitant]
     Indication: ANXIETY
     Dosage: UNK
     Dates: start: 19980101
  6. AMBIEN [Concomitant]
     Indication: INSOMNIA
  7. VALIUM [Concomitant]
     Indication: ANXIETY
     Dosage: UNK
     Dates: start: 19980101
  8. VALIUM [Concomitant]
     Indication: INSOMNIA

REACTIONS (1)
  - BREAST CANCER FEMALE [None]
